FAERS Safety Report 13878179 (Version 1)
Quarter: 2017Q3

REPORT INFORMATION
  Report Type: Spontaneous
  Country: US (occurrence: US)
  Receive Date: 20170817
  Receipt Date: 20170817
  Transmission Date: 20171127
  Serious: No
  Sender: FDA-Public Use
  Company Number: US-ROCHE-1377391

PATIENT
  Age: 58 Year
  Sex: Male
  Weight: 68.94 kg

DRUGS (5)
  1. PEG-INTERFERON ALFA 2A [Suspect]
     Active Substance: PEGINTERFERON ALFA-2A
     Route: 065
     Dates: start: 2007
  2. RIBAVIRIN. [Suspect]
     Active Substance: RIBAVIRIN
     Indication: CHRONIC HEPATITIS C
     Dosage: 2 TABLETS AT MORNING AND 3 TABLETS AT EVENING.
     Route: 048
     Dates: start: 201401
  3. PEG-INTERFERON ALFA 2A [Suspect]
     Active Substance: PEGINTERFERON ALFA-2A
     Indication: CHRONIC HEPATITIS C
     Route: 058
     Dates: start: 201401
  4. SOVALDI [Suspect]
     Active Substance: SOFOSBUVIR
     Indication: CHRONIC HEPATITIS C
     Route: 048
     Dates: start: 201401
  5. RIBAVIRIN. [Suspect]
     Active Substance: RIBAVIRIN
     Route: 065
     Dates: start: 2007

REACTIONS (10)
  - Abdominal pain upper [Unknown]
  - Weight decreased [Unknown]
  - Anxiety [Unknown]
  - Diarrhoea [Unknown]
  - Chest discomfort [Unknown]
  - Fatigue [Unknown]
  - Dyspnoea [Unknown]
  - Depression [Unknown]
  - Flatulence [Unknown]
  - Influenza like illness [Unknown]

NARRATIVE: CASE EVENT DATE: 201401
